FAERS Safety Report 5209103-5 (Version None)
Quarter: 2007Q1

REPORT INFORMATION
  Report Type: 
  Country: None (occurrence: None)
  Receive Date: 20070111
  Receipt Date: 20061222
  Transmission Date: 20070707
  Serious: No
  Sender: FDA-Public Use
  Company Number: B0449485A

PATIENT
  Age: 32 Year
  Sex: Female

DRUGS (6)
  1. CEFAZOLIN [Suspect]
     Indication: INFECTION PROPHYLAXIS
     Dosage: 1 GRAM (S) FOUR TIMES PER DAY/ INTRAVENOUS
     Route: 042
     Dates: start: 20060502, end: 20060502
  2. LIGNOCAINE HYDROCHLORIDE INJECTION                    (LIDOCAINE HCL) [Suspect]
     Indication: EPIDURAL ANAESTHESIA
     Dosage: EPIDURAL
     Route: 008
     Dates: start: 20060502
  3. PROPOFOL INJECION                           (PROPOFOL) [Suspect]
     Indication: GENERAL ANAESTHESIA
     Dosage: INTRAVENOUS
     Route: 042
     Dates: start: 20060502
  4. VECURONIUM BROMIDE [Suspect]
     Indication: GENERAL ANAESTHESIA
     Dosage: INTRAVENOUS
     Route: 042
     Dates: start: 20060502
  5. SEVOFLURANE [Suspect]
     Dosage: INHALED
     Route: 055
     Dates: start: 20060502
  6. FENTANYL [Suspect]
     Dosage: EPIDURAL
     Route: 008
     Dates: start: 20060502

REACTIONS (2)
  - ANAPHYLACTOID REACTION [None]
  - BLOOD PRESSURE DECREASED [None]
